FAERS Safety Report 4703613-2 (Version None)
Quarter: 2005Q2

REPORT INFORMATION
  Report Type: 
  Country: None (occurrence: None)
  Receive Date: 20050627
  Receipt Date: 20041020
  Transmission Date: 20051028
  Serious: Yes (Hospitalization, Other)
  Sender: FDA-Public Use
  Company Number: US-JNJFOC-20041006763

PATIENT
  Age: 54 Year
  Sex: Female

DRUGS (8)
  1. FENTANYL [Suspect]
     Indication: PAIN
     Dosage: 50 UG/HR, TRANSDERMAL
     Route: 062
     Dates: end: 20040101
  2. PEGINTERFERON ALFA-2B (PEGINTERFERON ALFA-2B) POWDER [Suspect]
     Indication: HEPATITIS C
     Dosage: 120 UG, 1 IN 1 WEEK, SUBCUTANEOUS
     Route: 058
     Dates: start: 20040303
  3. RIBAVIRIN [Suspect]
     Indication: HEPATITIS C
     Dosage: 1000 MG, 1 IN 1 DAY, ORAL
     Route: 048
     Dates: start: 20040303
  4. OMEPRAZOLE [Suspect]
     Dosage: 20 MG, ORAL
     Route: 048
     Dates: end: 20040101
  5. CLONIDINE [Concomitant]
  6. COLACE (DOCUSATE SODIUM) CAPSULES [Concomitant]
  7. ACETAMINOPHEN/OXYCODONE (OXYCOCET) CAPSULES [Concomitant]
  8. PAROXETINE HCL [Concomitant]

REACTIONS (2)
  - HALLUCINATION, VISUAL [None]
  - OVERDOSE [None]
